FAERS Safety Report 9078017 (Version 1)
Quarter: 2013Q1

REPORT INFORMATION
  Report Type: Report from Study
  Country: US (occurrence: US)
  Receive Date: 20130130
  Receipt Date: 20130130
  Transmission Date: 20140127
  Serious: No
  Sender: FDA-Public Use
  Company Number: US-ABBOTT-12P-163-0960758-00

PATIENT
  Sex: Female
  Weight: 59.02 kg

DRUGS (7)
  1. HUMIRA 40 MG/0.8 ML PEN [Suspect]
     Indication: CROHN^S DISEASE
     Dates: start: 201112
  2. VITAMIN A [Concomitant]
     Indication: VITAMIN SUPPLEMENTATION
  3. VITAMIN C [Concomitant]
     Indication: VITAMIN SUPPLEMENTATION
  4. VITAMIN B [Concomitant]
     Indication: VITAMIN SUPPLEMENTATION
  5. IMODIUM [Concomitant]
     Indication: CROHN^S DISEASE
  6. ONE A DAY [Concomitant]
     Indication: VITAMIN SUPPLEMENTATION
  7. TYLENOL [Concomitant]
     Indication: PAIN

REACTIONS (4)
  - Fistula [Not Recovered/Not Resolved]
  - Skin lesion [Not Recovered/Not Resolved]
  - Urticaria [Not Recovered/Not Resolved]
  - Staphylococcal infection [Unknown]
